FAERS Safety Report 8578311-8 (Version None)
Quarter: 2012Q3

REPORT INFORMATION
  Report Type: 
  Country: None (occurrence: None)
  Receive Date: 20120808
  Receipt Date: 20120723
  Transmission Date: 20120928
  Serious: Yes (Other)
  Sender: FDA-Public Use
  Company Number: US-JNJCP-30000121111

PATIENT
  Age: 86 Year
  Sex: Female
  Weight: 54 kg

DRUGS (9)
  1. TRISTRQUE 50/MG [Concomitant]
     Indication: DEPRESSION
     Dosage: 50 MG ONCE DAILY SINCE SIX MONTHS FOR DEPRESSION.
  2. ASPIRIN [Concomitant]
     Dosage: 325MG ONCE DAILY FOR UNSPECIFIED FEW YEARS FOR HEART HEALTH
  3. MULTI-VITAMINS [Concomitant]
     Indication: ROUTINE HEALTH MAINTENANCE
     Dosage: ONCE DAILY
  4. WELCHOL [Concomitant]
     Dosage: 625 MG ONCE DAILY SINCE SIX MONTHS
  5. CALCIUM [Concomitant]
     Indication: ROUTINE HEALTH MAINTENANCE
     Dosage: ONCE DAILY
  6. SPIRIVA [Concomitant]
     Dosage: ONCE DAILY SINCE TWO YEARS
  7. CRESTOR [Concomitant]
     Dosage: 20 MG ONE TIME DAILY SINCE ONE YEAR
  8. LOVAZA [Concomitant]
     Dosage: 1GM ONE TIME DAILY SINCE SIX MONTHS
  9. NTG AGE SHIELD FACE SUNBLOCK LOT SPF70 USA NTAS70US [Suspect]
     Dosage: IN AN ENOUGH AMOUNT TO COVER SKIN ONCE DAILY FOR A COUPLE DAYS
     Route: 061

REACTIONS (3)
  - APPLICATION SITE DISCOLOURATION [None]
  - RECURRENT CANCER [None]
  - APPLICATION SITE DRYNESS [None]
